FAERS Safety Report 8808606 (Version 2)
Quarter: 2012Q4

REPORT INFORMATION
  Report Type: 
  Country: DE (occurrence: DE)
  Receive Date: 20120926
  Receipt Date: 20121004
  Transmission Date: 20130627
  Serious: Yes (Hospitalization, Other)
  Sender: FDA-Public Use
  Company Number: DE-EISAI INC-E7389-03017-SPO-DE

PATIENT
  Age: 50 Year
  Sex: Female

DRUGS (4)
  1. HALAVEN [Suspect]
     Indication: METASTATIC BREAST CANCER
     Dosage: UNKNOWN
     Route: 041
     Dates: start: 201205
  2. RAMIPRIL [Concomitant]
     Route: 048
  3. HCT [Concomitant]
     Route: 048
  4. BISOPROLOL [Concomitant]
     Route: 048

REACTIONS (3)
  - Cardiac failure [Not Recovered/Not Resolved]
  - Pleural effusion [Not Recovered/Not Resolved]
  - Myocardial infarction [Unknown]
